FAERS Safety Report 5407740-6 (Version None)
Quarter: 2007Q3

REPORT INFORMATION
  Report Type: 
  Country: None (occurrence: None)
  Receive Date: 20070807
  Receipt Date: 20070726
  Transmission Date: 20080115
  Serious: Yes (Hospitalization)
  Sender: FDA-Public Use
  Company Number: FR-PFIZER INC-2007062783

PATIENT
  Sex: Male

DRUGS (5)
  1. DALACINE [Suspect]
     Indication: ARTHRITIS BACTERIAL
     Route: 042
     Dates: start: 20070408, end: 20070426
  2. AMOXICILLIN [Suspect]
     Indication: ARTHRITIS BACTERIAL
     Route: 042
     Dates: start: 20070408, end: 20070425
  3. TAVANIC [Concomitant]
  4. METRONIDAZOLE [Concomitant]
     Dates: start: 20070401, end: 20070412
  5. RIFAMPICIN [Concomitant]

REACTIONS (2)
  - ANGIOEDEMA [None]
  - URTICARIA [None]
